FAERS Safety Report 14235329 (Version 1)
Quarter: 2017Q4

REPORT INFORMATION
  Report Type: Spontaneous
  Country: US (occurrence: None)
  Receive Date: 20171128
  Receipt Date: 20171128
  Transmission Date: 20180321
  Serious: Yes (Hospitalization)
  Sender: FDA-Public Use
  Company Number: None

PATIENT
  Age: 56 Year
  Sex: Male
  Weight: 86 kg

DRUGS (2)
  1. CITALOPRAM [Suspect]
     Active Substance: CITALOPRAM HYDROBROMIDE
     Indication: AFFECTIVE DISORDER
     Route: 048
     Dates: end: 20170501
  2. TRYPTOPHAN [Suspect]
     Active Substance: TRYPTOPHAN
     Indication: DRUG THERAPY
     Dates: end: 20170501

REACTIONS (1)
  - Serotonin syndrome [None]

NARRATIVE: CASE EVENT DATE: 20170502
